FAERS Safety Report 22917528 (Version 3)
Quarter: 2023Q4

REPORT INFORMATION
  Report Type: Spontaneous
  Country: US (occurrence: US)
  Receive Date: 20230907
  Receipt Date: 20231207
  Transmission Date: 20240109
  Serious: No
  Sender: FDA-Public Use
  Company Number: US-BRISTOL-MYERS SQUIBB COMPANY-2023-126577

PATIENT
  Age: 72 Year
  Sex: Male
  Weight: 144.6 kg

DRUGS (1)
  1. REVLIMID [Suspect]
     Active Substance: LENALIDOMIDE
     Indication: Plasma cell myeloma
     Route: 048
     Dates: start: 20230810

REACTIONS (6)
  - Hiccups [Unknown]
  - Flatulence [Unknown]
  - Eructation [Unknown]
  - Off label use [Unknown]
  - Pain in extremity [Not Recovered/Not Resolved]
  - Rash pruritic [Recovering/Resolving]
